FAERS Safety Report 11155381 (Version 1)
Quarter: 2015Q2

REPORT INFORMATION
  Report Type: Spontaneous
  Country: RU (occurrence: RU)
  Receive Date: 20150602
  Receipt Date: 20150602
  Transmission Date: 20150821
  Serious: Yes (Other)
  Sender: FDA-Public Use
  Company Number: RU-APOTEX-2015AP009847

PATIENT
  Age: 6 Year

DRUGS (2)
  1. TRILEPTAL [Suspect]
     Active Substance: OXCARBAZEPINE
     Indication: EPILEPSY
     Dosage: 600 MG, UNK
     Route: 065
  2. PAXIL [Suspect]
     Active Substance: PAROXETINE HYDROCHLORIDE
     Indication: EPILEPSY
     Dosage: 250 MG, QD
     Route: 065

REACTIONS (5)
  - Mental disorder [Unknown]
  - Impulsive behaviour [Unknown]
  - Laziness [Unknown]
  - Mental retardation [Unknown]
  - Drug ineffective [Recovered/Resolved]
